FAERS Safety Report 5852818-6 (Version None)
Quarter: 2008Q3

REPORT INFORMATION
  Report Type: 
  Country: None (occurrence: None)
  Receive Date: 20080821
  Receipt Date: 20080617
  Transmission Date: 20090109
  Serious: No
  Sender: FDA-Public Use
  Company Number: US-BAYER-200812737BCC

PATIENT
  Age: 53 Year
  Sex: Female
  Weight: 73 kg

DRUGS (3)
  1. ALEVE (CAPLET) [Suspect]
     Indication: ARTHRALGIA
     Dosage: UNIT DOSE: 220 MG
     Route: 048
     Dates: start: 20080611, end: 20080614
  2. VALIUM [Concomitant]
  3. RISPERDAL [Concomitant]

REACTIONS (2)
  - DYSPNOEA [None]
  - PAIN IN EXTREMITY [None]
